FAERS Safety Report 13452087 (Version 2)
Quarter: 2017Q2

REPORT INFORMATION
  Report Type: Spontaneous
  Country: FR (occurrence: FR)
  Receive Date: 20170418
  Receipt Date: 20170421
  Transmission Date: 20170830
  Serious: Yes (Other)
  Sender: FDA-Public Use
  Company Number: FR-REGENERON PHARMACEUTICALS, INC.-2017-14387

PATIENT

DRUGS (3)
  1. EYLEA [Suspect]
     Active Substance: AFLIBERCEPT
     Indication: RETINAL PIGMENT EPITHELIOPATHY
     Dosage: 1 DF, ONCE
     Dates: start: 20131205
  2. EYLEA [Suspect]
     Active Substance: AFLIBERCEPT
     Indication: RETINAL NEOVASCULARISATION
     Dosage: 1 DF, ONCE
     Dates: start: 20140522
  3. EYLEA [Suspect]
     Active Substance: AFLIBERCEPT
     Dosage: 1 DF, ONCE
     Dates: start: 20140522

REACTIONS (6)
  - Off label use [Unknown]
  - Product use in unapproved indication [Unknown]
  - Corneal deposits [Recovered/Resolved]
  - Visual acuity reduced [Recovered/Resolved]
  - Uveitis [Recovered/Resolved]
  - Vitritis [Recovered/Resolved]
